FAERS Safety Report 7976943-9 (Version None)
Quarter: 2011Q4

REPORT INFORMATION
  Report Type: 
  Country: None (occurrence: None)
  Receive Date: 20111213
  Receipt Date: 20111111
  Transmission Date: 20120403
  Serious: No
  Sender: FDA-Public Use
  Company Number: US-AMGEN-USASP2011059535

PATIENT
  Age: 61 Year
  Sex: Female

DRUGS (2)
  1. ENBREL [Suspect]
     Indication: PSORIATIC ARTHROPATHY
     Dosage: 50 MG, 2 TIMES/WK
     Dates: start: 20110928
  2. ENBREL [Suspect]
     Indication: PSORIASIS

REACTIONS (9)
  - BACK PAIN [None]
  - JOINT SWELLING [None]
  - INJECTION SITE PAIN [None]
  - DRUG INEFFECTIVE [None]
  - ARTHRALGIA [None]
  - GAIT DISTURBANCE [None]
  - ALOPECIA [None]
  - PSORIASIS [None]
  - INJECTION SITE ERYTHEMA [None]
